FAERS Safety Report 5809767-9 (Version None)
Quarter: 2008Q3

REPORT INFORMATION
  Report Type: 
  Country: None (occurrence: None)
  Receive Date: 20080708
  Receipt Date: 20071002
  Transmission Date: 20090109
  Serious: Yes (Hospitalization)
  Sender: FDA-Public Use
  Company Number: 2007100005

PATIENT
  Age: 53 Year
  Sex: Female

DRUGS (1)
  1. SOMA [Suspect]
     Indication: FIBROMYALGIA
     Dosage: 2100 MG (700 MG, 3 IN 1 D), ORAL
     Route: 048
     Dates: start: 19920101

REACTIONS (2)
  - DRUG ABUSE [None]
  - ROAD TRAFFIC ACCIDENT [None]
